FAERS Safety Report 23277392 (Version 1)
Quarter: 2023Q4

REPORT INFORMATION
  Report Type: Spontaneous
  Country: US (occurrence: US)
  Receive Date: 20231208
  Receipt Date: 20231208
  Transmission Date: 20240110
  Serious: No
  Sender: FDA-Public Use
  Company Number: US-MYLANLABS-2023M1120923

PATIENT
  Sex: Female
  Weight: 78 kg

DRUGS (1)
  1. CLONIDINE TRANSDERMAL SYSTEM [Suspect]
     Active Substance: CLONIDINE
     Indication: Hot flush
     Dosage: 0.2 MILLIGRAM, QD (WEEKLY)
     Route: 062

REACTIONS (3)
  - Product adhesion issue [Unknown]
  - Off label use [Unknown]
  - Wrong technique in product usage process [Unknown]
